FAERS Safety Report 10380919 (Version 1)
Quarter: 2014Q3

REPORT INFORMATION
  Report Type: Spontaneous
  Country: US (occurrence: US)
  Receive Date: 20140813
  Receipt Date: 20140813
  Transmission Date: 20150326
  Serious: Yes (Life-Threatening, Other)
  Sender: FDA-Public Use
  Company Number: US-JNJFOC-20140720352

PATIENT

DRUGS (6)
  1. DOXORUBICIN [Suspect]
     Active Substance: DOXORUBICIN
     Indication: DIFFUSE LARGE B-CELL LYMPHOMA
     Route: 042
  2. BEXXAR [Suspect]
     Active Substance: TOSITUMOMAB\TOSITUMOMAB I-131
     Indication: DIFFUSE LARGE B-CELL LYMPHOMA
     Route: 065
  3. RITUXIMAB [Suspect]
     Active Substance: RITUXIMAB
     Indication: DIFFUSE LARGE B-CELL LYMPHOMA
     Route: 065
  4. PREDNISONE. [Suspect]
     Active Substance: PREDNISONE
     Indication: DIFFUSE LARGE B-CELL LYMPHOMA
     Route: 065
  5. VINCRISTINE [Suspect]
     Active Substance: VINCRISTINE
     Indication: DIFFUSE LARGE B-CELL LYMPHOMA
     Route: 065
  6. CYCLOPHOSPHAMIDE. [Suspect]
     Active Substance: CYCLOPHOSPHAMIDE
     Indication: DIFFUSE LARGE B-CELL LYMPHOMA
     Route: 065

REACTIONS (18)
  - Influenza like illness [Unknown]
  - Pneumonitis [Unknown]
  - Hypokalaemia [Unknown]
  - White blood cell disorder [Unknown]
  - Hyperglycaemia [Unknown]
  - Rectal haemorrhage [Unknown]
  - Gastrointestinal disorder [Unknown]
  - Lymphopenia [Unknown]
  - Myocardial ischaemia [Unknown]
  - Dehydration [Unknown]
  - Neutrophil count abnormal [Unknown]
  - Haemoglobin abnormal [Unknown]
  - Hyperuricaemia [Unknown]
  - Neuropathy peripheral [Unknown]
  - Cardiovascular disorder [Unknown]
  - Infection [Unknown]
  - Disease progression [Unknown]
  - Platelet disorder [Unknown]
